FAERS Safety Report 23998231 (Version 1)
Quarter: 2024Q2

REPORT INFORMATION
  Report Type: Report from Study
  Country: NL (occurrence: NL)
  Receive Date: 20240621
  Receipt Date: 20240621
  Transmission Date: 20240716
  Serious: Yes (Other)
  Sender: FDA-Public Use
  Company Number: NL-ABBVIE-5511781

PATIENT
  Sex: Female

DRUGS (6)
  1. VEDOLIZUMAB [Suspect]
     Active Substance: VEDOLIZUMAB
     Indication: Crohn^s disease
     Dosage: UNK
     Route: 065
     Dates: start: 2020, end: 2023
  2. ADALIMUMAB [Suspect]
     Active Substance: ADALIMUMAB\ISOPROPYL ALCOHOL
     Indication: Crohn^s disease
     Dosage: UNK
     Route: 058
     Dates: start: 2009, end: 2019
  3. USTEKINUMAB [Suspect]
     Active Substance: USTEKINUMAB
     Indication: Crohn^s disease
     Dosage: UNK UNK, Q4WEEKS
     Route: 065
     Dates: start: 201902, end: 201910
  4. INFLIXIMAB [Suspect]
     Active Substance: INFLIXIMAB
     Indication: Crohn^s disease
     Dosage: UNK
     Route: 065
     Dates: start: 2007, end: 2009
  5. PREDNISOLONE [Suspect]
     Active Substance: PREDNISOLONE
     Indication: Crohn^s disease
     Dosage: UNK
     Route: 065
  6. UPADACITINIB [Suspect]
     Active Substance: UPADACITINIB
     Indication: Crohn^s disease
     Dosage: UNK
     Route: 048

REACTIONS (12)
  - Colon operation [Recovered/Resolved]
  - Therapeutic product effect decreased [Not Recovered/Not Resolved]
  - Small intestinal resection [Unknown]
  - Drug ineffective [Not Recovered/Not Resolved]
  - Enteritis [Not Recovered/Not Resolved]
  - Fistula [Unknown]
  - Therapeutic product effect incomplete [Not Recovered/Not Resolved]
  - Sleeve gastrectomy [Unknown]
  - Therapeutic product effect decreased [Not Recovered/Not Resolved]
  - Adverse event [Unknown]
  - Colitis [Not Recovered/Not Resolved]
  - Colostomy [Unknown]
